FAERS Safety Report 7084118 (Version 3)
Quarter: 2016Q1

REPORT INFORMATION
  Report Type: Spontaneous
  Country: DE (occurrence: DE)
  Receive Date: 20090818
  Receipt Date: 20160111
  Transmission Date: 20160526
  Serious: Yes (Congenital Anomaly, Other)
  Sender: FDA-Public Use
  Company Number: DE-BRISTOL-MYERS SQUIBB COMPANY-14742720

PATIENT
  Sex: Male

DRUGS (1)
  1. ABILIFY [Suspect]
     Active Substance: ARIPIPRAZOLE
     Indication: PRODUCT USED FOR UNKNOWN INDICATION
     Dosage: 15 MG, QD
     Route: 064
     Dates: end: 20081117

REACTIONS (4)
  - Trisomy 21 [Unknown]
  - Foetal exposure during pregnancy [Recovered/Resolved]
  - Floppy infant [Unknown]
  - Heart disease congenital [Unknown]
